FAERS Safety Report 21837387 (Version 1)
Quarter: 2023Q1

REPORT INFORMATION
  Report Type: Other
  Country: US (occurrence: None)
  Receive Date: 20230109
  Receipt Date: 20230109
  Transmission Date: 20230418
  Serious: Yes (Hospitalization)
  Sender: FDA-Public Use
  Company Number: US-ROCHE-3257236

PATIENT
  Age: 60 Year
  Sex: Female
  Weight: 78.542 kg

DRUGS (12)
  1. OCREVUS [Suspect]
     Active Substance: OCRELIZUMAB
     Indication: Relapsing-remitting multiple sclerosis
     Dosage: DATE OF SERVICE:02/MAR/2018, 06/SEP/2020, 16/MAY/2021, /SEP/2021, 27/MAY/2022, AND 18/DEC/2022
     Route: 042
     Dates: start: 2018
  2. BACLOFEN [Concomitant]
     Active Substance: BACLOFEN
  3. ESTRADIOL [Concomitant]
     Active Substance: ESTRADIOL
  4. VITAMIN D3 [Concomitant]
     Active Substance: CHOLECALCIFEROL
  5. DULOXETINE [Concomitant]
     Active Substance: DULOXETINE
  6. MONTELUKAST [Concomitant]
     Active Substance: MONTELUKAST SODIUM
  7. NEBIVOLOL [Concomitant]
     Active Substance: NEBIVOLOL
  8. IRBESARTAN [Concomitant]
     Active Substance: IRBESARTAN
  9. CELEBREX [Concomitant]
     Active Substance: CELECOXIB
  10. METFORMIN [Concomitant]
     Active Substance: METFORMIN HYDROCHLORIDE
  11. PANTOPRAZOLE [Concomitant]
     Active Substance: PANTOPRAZOLE
  12. LORAZEPAM [Concomitant]
     Active Substance: LORAZEPAM

REACTIONS (5)
  - COVID-19 [Recovered/Resolved]
  - Neutrophil count decreased [Recovered/Resolved]
  - Immunisation reaction [Recovered/Resolved]
  - Vein disorder [Not Recovered/Not Resolved]
  - Anxiety [Not Recovered/Not Resolved]

NARRATIVE: CASE EVENT DATE: 20200801
